FAERS Safety Report 25286462 (Version 1)
Quarter: 2025Q2

REPORT INFORMATION
  Report Type: Other
  Country: US (occurrence: US)
  Receive Date: 20250509
  Receipt Date: 20250509
  Transmission Date: 20250716
  Serious: Yes (Hospitalization, Other)
  Sender: ANI
  Company Number: US-ANIPHARMA-022641

PATIENT
  Age: 71 Year
  Sex: Female

DRUGS (4)
  1. CLOPIDOGREL [Suspect]
     Active Substance: CLOPIDOGREL BISULFATE
     Indication: Cardiovascular event prophylaxis
  2. DILTIAZEM [Concomitant]
     Active Substance: DILTIAZEM
     Indication: Atrial fibrillation
  3. APIXABAN [Concomitant]
     Active Substance: APIXABAN
     Indication: Atrial fibrillation
  4. AMIODARONE [Concomitant]
     Active Substance: AMIODARONE
     Indication: Atrial fibrillation

REACTIONS (1)
  - Mesenteric haematoma [Unknown]
